FAERS Safety Report 17091429 (Version 1)
Quarter: 2019Q4

REPORT INFORMATION
  Report Type: Report from Study
  Country: None (occurrence: CO)
  Receive Date: 20191129
  Receipt Date: 20191129
  Transmission Date: 20200122
  Serious: Yes (Death, Hospitalization, Other)
  Sender: FDA-Public Use
  Company Number: CO-ABBVIE-19K-036-3175142-00

PATIENT
  Age: 1 Month
  Sex: Female

DRUGS (1)
  1. SYNAGIS [Suspect]
     Active Substance: PALIVIZUMAB
     Indication: PREMATURE BABY
     Route: 030
     Dates: start: 20190925, end: 20190925

REACTIONS (4)
  - Abdominal distension [Not Recovered/Not Resolved]
  - Cardiac arrest [Fatal]
  - Diarrhoea [Not Recovered/Not Resolved]
  - Laparotomy [Not Recovered/Not Resolved]

NARRATIVE: CASE EVENT DATE: 20191027
